FAERS Safety Report 8877636 (Version 2)
Quarter: 2012Q4

REPORT INFORMATION
  Report Type: 
  Country: IT (occurrence: IT)
  Receive Date: 20121024
  Receipt Date: 20121130
  Transmission Date: 20130627
  Serious: Yes (Other)
  Sender: FDA-Public Use
  Company Number: IT-SANOFI-AVENTIS-2012SA075327

PATIENT
  Age: 54 Year
  Sex: Female

DRUGS (5)
  1. TAXOTERE [Suspect]
     Indication: BREAST CANCER NOS
     Route: 042
     Dates: start: 20121009, end: 20121009
  2. DEXAMETHASONE PHOSPHATE [Concomitant]
     Dosage: strength: 8mg/2ml
  3. ONDANSETRON [Concomitant]
     Dosage: strength: 4 mg/2ml
  4. CYCLOPHOSPHAMIDE [Concomitant]
  5. TRIMETON [Concomitant]
     Dosage: strength: 10mg/1ml

REACTIONS (3)
  - Hypertensive crisis [Recovering/Resolving]
  - Vision blurred [Recovering/Resolving]
  - Bronchospasm [Recovering/Resolving]
